FAERS Safety Report 15037409 (Version 1)
Quarter: 2018Q2

REPORT INFORMATION
  Report Type: Spontaneous
  Country: DE (occurrence: DE)
  Receive Date: 20180620
  Receipt Date: 20180620
  Transmission Date: 20180711
  Serious: Yes (Hospitalization)
  Sender: FDA-Public Use
  Company Number: DE-TEVA-2018-DE-908637

PATIENT
  Age: 59 Year
  Sex: Male

DRUGS (15)
  1. NACL [Concomitant]
     Active Substance: SODIUM CHLORIDE
     Dosage: NK IE, 1-1-1-1
     Route: 055
  2. HCT [Concomitant]
     Active Substance: HYDROCHLOROTHIAZIDE
     Dosage: 25 MG, 1-0-0-0
     Route: 065
  3. RAMIPRIL. [Concomitant]
     Active Substance: RAMIPRIL
     Dosage: 5 MG, 0-0-1-0
     Route: 065
  4. ACC [Concomitant]
     Active Substance: ACETYLCYSTEINE
     Dosage: 600 MG, 1-0-0-0
     Route: 065
  5. METFORMIN [Concomitant]
     Active Substance: METFORMIN HYDROCHLORIDE
     Dosage: 500 MG, 1-0-0-0
     Route: 065
  6. MST [Concomitant]
     Active Substance: MORPHINE SULFATE\NALTREXONE HYDROCHLORIDE
     Dosage: 10 MG, 1-0-1-0
     Route: 065
  7. METHOCARBAMOL. [Suspect]
     Active Substance: METHOCARBAMOL
     Dosage: 750 MG, 1-1-1-0
     Route: 065
  8. ACTRAPHANE HM [Concomitant]
     Active Substance: INSULIN HUMAN
     Dosage: NK IE, 20-0-16-0
     Route: 065
  9. OMEPRAZOL [Concomitant]
     Active Substance: OMEPRAZOLE
     Dosage: 40 MG, 1-0-0-0
     Route: 065
  10. BACLOFEN. [Suspect]
     Active Substance: BACLOFEN
     Dosage: 10 MG, 2-1-2-0
     Route: 065
  11. ATORVASTATIN [Concomitant]
     Active Substance: ATORVASTATIN
     Dosage: 40 MG, 0-0-1-0
     Route: 065
  12. VIDISIC [Concomitant]
     Dosage: NK MG, 1-1-1-0
     Route: 047
  13. TORASEMID [Concomitant]
     Active Substance: TORSEMIDE
     Dosage: 10 MG, 1-0-0-0
     Route: 065
  14. AMLODIPINE [Concomitant]
     Active Substance: AMLODIPINE BESYLATE
     Dosage: 2.5 MG, 1-0-1-0
     Route: 065
  15. ASS 100 [Concomitant]
     Active Substance: ASPIRIN
     Dosage: 100 MG, 0-1-0-0
     Route: 065

REACTIONS (1)
  - Tonic clonic movements [Unknown]

NARRATIVE: CASE EVENT DATE: 20170129
